FAERS Safety Report 18884973 (Version 1)
Quarter: 2021Q1

REPORT INFORMATION
  Report Type: Spontaneous
  Country: US (occurrence: US)
  Receive Date: 20210212
  Receipt Date: 20210212
  Transmission Date: 20210420
  Serious: Yes (Other)
  Sender: FDA-Public Use
  Company Number: None

PATIENT
  Age: 56 Year
  Sex: Female
  Weight: 103 kg

DRUGS (4)
  1. METHYLPREDNISOLONE 125 MG [Concomitant]
     Dates: start: 20210209, end: 20210209
  2. GAMUNEX?C [Suspect]
     Active Substance: HUMAN IMMUNOGLOBULIN G
     Indication: SECONDARY IMMUNODEFICIENCY
     Dosage: ?          OTHER FREQUENCY:ONCE EVERY 4 WEEKS;?
     Route: 041
     Dates: start: 20210209, end: 20210209
  3. ACETAMINOPHEN 650 MG [Concomitant]
     Active Substance: ACETAMINOPHEN
     Dates: start: 20210209, end: 20210209
  4. DIPHENHYDRAMINE 25 MG [Concomitant]
     Dates: start: 20210209, end: 20210209

REACTIONS (1)
  - Urticaria [None]

NARRATIVE: CASE EVENT DATE: 20210209
